FAERS Safety Report 12695094 (Version 1)
Quarter: 2016Q3

REPORT INFORMATION
  Report Type: Report from Study
  Country: CA (occurrence: CA)
  Receive Date: 20160829
  Receipt Date: 20160829
  Transmission Date: 20161109
  Serious: Yes (Other)
  Sender: FDA-Public Use
  Company Number: CA-JNJFOC-20160504526

PATIENT
  Age: 47 Year
  Sex: Female
  Weight: 49.5 kg

DRUGS (3)
  1. REMICADE [Suspect]
     Active Substance: INFLIXIMAB
     Indication: CROHN^S DISEASE
     Route: 042
     Dates: start: 20130923
  2. REMICADE [Suspect]
     Active Substance: INFLIXIMAB
     Indication: CROHN^S DISEASE
     Dosage: INFUSION NUMBER 32
     Route: 042
     Dates: start: 20160823
  3. REMICADE [Suspect]
     Active Substance: INFLIXIMAB
     Indication: CROHN^S DISEASE
     Route: 042
     Dates: start: 20160706

REACTIONS (8)
  - Vomiting [Recovered/Resolved]
  - Product use issue [Unknown]
  - Inappropriate schedule of drug administration [Unknown]
  - Abdominal pain [Not Recovered/Not Resolved]
  - General physical health deterioration [Recovering/Resolving]
  - Gastroenteritis viral [Recovered/Resolved]
  - Off label use [Unknown]
  - Tooth abscess [Recovered/Resolved]

NARRATIVE: CASE EVENT DATE: 20130923
